FAERS Safety Report 19816876 (Version 1)
Quarter: 2021Q3

REPORT INFORMATION
  Report Type: Spontaneous
  Country: NL (occurrence: NL)
  Receive Date: 20210910
  Receipt Date: 20210910
  Transmission Date: 20211014
  Serious: Yes (Life-Threatening)
  Sender: FDA-Public Use
  Company Number: NL-TEVA-2021-NL-1950398

PATIENT
  Age: 63 Year
  Sex: Female

DRUGS (11)
  1. TIOTROPIUM VERNEVELVLST 2,5UG/DO / BRAND NAME NOT SPECIFIED [Concomitant]
     Dosage: NEBULISER FLUID, 2.5 UG/DOSE (MICROGRAMS PER DOSE)THERAPY START DATE:THERAPY END DATE:ASKU
  2. SPIRONOLACTON TABLET 12,5MG / BRAND NAME NOT SPECIFIED [Concomitant]
     Active Substance: SPIRONOLACTONE
     Dosage: 12,5 MG (MILLIGRAM)THERAPY START DATE :THERAPY END DATE :ASKU
  3. PANTOPRAZOL TABLET MSR 40MG / BRAND NAME NOT SPECIFIED [Concomitant]
     Active Substance: PANTOPRAZOLE
     Dosage: 40 MG (MILLIGRAM)THERAPY START DATE:THERAPY END DATE:ASKU
  4. METOPROLOL TABLET   50MG / BRAND NAME NOT SPECIFIED [Concomitant]
     Active Substance: LETROZOLE
     Dosage: 50 MG (MILLIGRAM)THERAPY START DATE:THERAPY END DATE :ASKU
  5. ROSUVASTATINE TABLET 40MG / BRAND NAME NOT SPECIFIED [Suspect]
     Active Substance: ROSUVASTATIN
     Indication: PROPHYLAXIS
     Dosage: 40 MILLIGRAM DAILY; 1DD1PIECE
     Dates: start: 20210811, end: 20210822
  6. SALMETEROL/FLUTICASON AEROSOL 25/250UG/DO / BRAND NAME NOT SPECIFIED [Concomitant]
     Dosage: 25/250 UG/DOSE (MICROGRAMS PER DOSE)AEROSOL, THERAPY START DATE :THERAPY END DATE:ASKU
  7. CLOPIDOGREL TABLET   75MG / BRAND NAME NOT SPECIFIED [Concomitant]
     Active Substance: CLOPIDOGREL BISULFATE
     Dosage: 75 MG (MILLIGRAM)THERAPY START DATE:THERAPY END DATE:ASKU
  8. PREGABALINE CAPSULE  75MG / BRAND NAME NOT SPECIFIED [Concomitant]
     Dosage: 75 MG (MILLIGRAM)THERAPY START DATE :THERAPY END DATE:ASKU
  9. LISINOPRIL TABLET 10MG / BRAND NAME NOT SPECIFIED [Concomitant]
     Active Substance: LISINOPRIL
     Dosage: 10 MG (MILLIGRAM)THERAPY START DATE:THERAPY END DATE:ASKU
  10. SALBUTAMOL AEROSOL 100UG/DO / BRAND NAME NOT SPECIFIED [Concomitant]
     Active Substance: ALBUTEROL
     Dosage: AEROSOL, 100 UG/DOSE (MICROGRAMS PER DOSE)THERAPY START DATE :THERAPY END DATE:ASKU
  11. MACROGOL/ZOUTEN PDR V DRANK (MOVIC/MOLAX/LAXT/GEN) / MOVICOLON POEDER [Concomitant]
     Dosage: POWDER FOR DRINKTHERAPY START DATE:THERAPY END DATE:ASKU:POWDER FOR BEVERAGE IN SACHET

REACTIONS (1)
  - Rhabdomyolysis [Recovering/Resolving]

NARRATIVE: CASE EVENT DATE: 20210820
